FAERS Safety Report 5590495-2 (Version None)
Quarter: 2008Q1

REPORT INFORMATION
  Report Type: 
  Country: None (occurrence: None)
  Receive Date: 20080114
  Receipt Date: 20071218
  Transmission Date: 20080703
  Serious: No
  Sender: FDA-Public Use
  Company Number: US-BOEHRINGER INGELHEIM PHARMACEUTICALS, INC.-2007-BP-26600BP

PATIENT
  Age: 88 Year
  Sex: Male

DRUGS (10)
  1. COMBIVENT [Suspect]
     Indication: ASTHMA
     Route: 055
     Dates: start: 20071018
  2. COMBIVENT [Suspect]
     Indication: CARDIAC FAILURE CONGESTIVE
  3. TOPROL-XL [Concomitant]
     Indication: HYPERTENSION
  4. DIGOXIN [Concomitant]
  5. POTASSIUM CHLORIDE [Concomitant]
  6. PANGESTYME 12 [Concomitant]
  7. WARFARIN SODIUM [Concomitant]
  8. OSCAL [Concomitant]
  9. CENTRUM SILVER [Concomitant]
  10. FUROSEMIDE [Concomitant]

REACTIONS (1)
  - ASTHMA [None]
